FAERS Safety Report 15999303 (Version 1)
Quarter: 2019Q1

REPORT INFORMATION
  Report Type: Spontaneous
  Country: US (occurrence: US)
  Receive Date: 20190225
  Receipt Date: 20190225
  Transmission Date: 20190418
  Serious: No
  Sender: FDA-Public Use
  Company Number: US-PFIZER INC-2019079854

PATIENT
  Age: 68 Year
  Sex: Male

DRUGS (1)
  1. GENOTROPIN MQ [Suspect]
     Active Substance: SOMATROPIN
     Indication: EMPTY SELLA SYNDROME
     Dosage: 0.2 MG, DAILY

REACTIONS (8)
  - Blood testosterone decreased [Unknown]
  - Haemoglobin decreased [Unknown]
  - Thyroxine increased [Unknown]
  - Drug ineffective for unapproved indication [Unknown]
  - Blood prolactin decreased [Unknown]
  - Blood thyroid stimulating hormone decreased [Unknown]
  - Haematocrit decreased [Unknown]
  - Monocyte count increased [Unknown]

NARRATIVE: CASE EVENT DATE: 20180823
